FAERS Safety Report 6426939-3 (Version None)
Quarter: 2009Q4

REPORT INFORMATION
  Report Type: 
  Country: None (occurrence: None)
  Receive Date: 20091104
  Receipt Date: 20091026
  Transmission Date: 20100525
  Serious: Yes (Hospitalization, Other)
  Sender: FDA-Public Use
  Company Number: US-ABBOTT-09P-163-0605001-00

PATIENT
  Sex: Male
  Weight: 88.53 kg

DRUGS (1)
  1. LUPRON DEPOT [Suspect]
     Indication: PROSTATIC SPECIFIC ANTIGEN INCREASED
     Dates: start: 20090901

REACTIONS (9)
  - ARRHYTHMIA [None]
  - ASTHENIA [None]
  - CONFUSIONAL STATE [None]
  - CONVULSION [None]
  - ENCEPHALOMALACIA [None]
  - HYDROCEPHALUS [None]
  - MALAISE [None]
  - SKIN DISCOLOURATION [None]
  - TACHYCARDIA [None]
